FAERS Safety Report 4578157-1 (Version None)
Quarter: 2005Q1

REPORT INFORMATION
  Report Type: 
  Country: None (occurrence: None)
  Receive Date: 20050203
  Receipt Date: 20050203
  Transmission Date: 20050727
  Serious: Yes (Other)
  Sender: FDA-Public Use
  Company Number: None

PATIENT
  Sex: Female
  Weight: 92.9874 kg

DRUGS (1)
  1. DOXORUBICIN [Suspect]
     Indication: BREAST CANCER
     Dosage: 95 MG IV (ILLEGIBLE)
     Route: 042
     Dates: start: 20050123

REACTIONS (6)
  - BURNING SENSATION [None]
  - ERYTHEMA [None]
  - FEELING HOT [None]
  - FLUSHING [None]
  - INFUSION RELATED REACTION [None]
  - RASH [None]
